FAERS Safety Report 19941172 (Version 1)
Quarter: 2021Q4

REPORT INFORMATION
  Report Type: Report from Study
  Country: GB (occurrence: GB)
  Receive Date: 20211012
  Receipt Date: 20211012
  Transmission Date: 20220303
  Serious: Yes (Hospitalization, Other)
  Sender: FDA-Public Use
  Company Number: GB-SUN PHARMACEUTICAL INDUSTRIES LTD-2021RR-313782

PATIENT
  Sex: Female

DRUGS (3)
  1. ASPIRIN [Suspect]
     Active Substance: ASPIRIN
     Indication: Endometriosis
     Dosage: 75 MG
     Route: 064
  2. CLINDAMYCIN [Suspect]
     Active Substance: CLINDAMYCIN
     Indication: Endometriosis
     Dosage: 150 MG
     Route: 064
  3. ENOXAPARIN SODIUM [Suspect]
     Active Substance: ENOXAPARIN SODIUM
     Indication: Endometriosis
     Dosage: 60 MG
     Route: 064

REACTIONS (8)
  - Exposure during pregnancy [Unknown]
  - Premature baby [Unknown]
  - Sepsis [Unknown]
  - Neonatal respiratory distress syndrome [Unknown]
  - Chronic respiratory disease [Unknown]
  - Pulmonary hypertension [Unknown]
  - Hypotension [Unknown]
  - Gastrooesophageal reflux disease [Unknown]
